FAERS Safety Report 4903867-3 (Version None)
Quarter: 2006Q1

REPORT INFORMATION
  Report Type: 
  Country: None (occurrence: None)
  Receive Date: 20060208
  Receipt Date: 20050714
  Transmission Date: 20060701
  Serious: No
  Sender: FDA-Public Use
  Company Number: US-GLAXOSMITHKLINE-A0566544A

PATIENT
  Age: 38 Year
  Sex: Female

DRUGS (1)
  1. PAXIL [Suspect]
     Indication: DRUG USE FOR UNKNOWN INDICATION
     Route: 048
     Dates: start: 20031201

REACTIONS (12)
  - ABNORMAL DREAMS [None]
  - CHILLS [None]
  - CONFUSIONAL STATE [None]
  - DIARRHOEA [None]
  - DRUG WITHDRAWAL SYNDROME [None]
  - FACIAL SPASM [None]
  - FATIGUE [None]
  - INFLUENZA LIKE ILLNESS [None]
  - NIGHT SWEATS [None]
  - PANIC ATTACK [None]
  - PARAESTHESIA [None]
  - SENSORY DISTURBANCE [None]
